FAERS Safety Report 9769396 (Version 3)
Quarter: 2014Q2

REPORT INFORMATION
  Report Type: Spontaneous
  Country: GB (occurrence: GB)
  Receive Date: 20131218
  Receipt Date: 20140626
  Transmission Date: 20141212
  Serious: Yes (Other)
  Sender: FDA-Public Use
  Company Number: GB-DRREDDYS-GER/UKI/13/0036426

PATIENT
  Age: 49 Year
  Sex: Female
  Weight: 80 kg

DRUGS (5)
  1. SERTRALINE [Suspect]
     Indication: DEPRESSION
     Route: 048
     Dates: start: 20130730, end: 201311
  2. SERTRALINE [Suspect]
     Route: 048
     Dates: start: 201311
  3. FENTANYL [Concomitant]
     Indication: ARTHRALGIA
     Route: 062
     Dates: start: 2012
  4. OXYCODONE [Concomitant]
     Indication: OSTEOARTHRITIS
     Route: 048
     Dates: start: 2012
  5. OXYCODONE [Concomitant]
     Indication: PAIN

REACTIONS (7)
  - Osteoarthritis [Not Recovered/Not Resolved]
  - Weight increased [Not Recovered/Not Resolved]
  - Arthralgia [Not Recovered/Not Resolved]
  - Fear [Not Recovered/Not Resolved]
  - Abdominal pain [Not Recovered/Not Resolved]
  - Diarrhoea [Not Recovered/Not Resolved]
  - Flatulence [Not Recovered/Not Resolved]
